FAERS Safety Report 11541329 (Version 1)
Quarter: 2015Q3

REPORT INFORMATION
  Report Type: Spontaneous
  Country: US (occurrence: US)
  Receive Date: 20150923
  Receipt Date: 20150923
  Transmission Date: 20151125
  Serious: No
  Sender: FDA-Public Use
  Company Number: US-PFIZER INC-2015314157

PATIENT
  Age: 64 Year
  Sex: Male
  Weight: 136 kg

DRUGS (8)
  1. FLOMAX [Concomitant]
     Active Substance: TAMSULOSIN HYDROCHLORIDE
     Indication: MICTURITION DISORDER
     Dosage: 40 MG, 1X/DAY, 40MG TABLET BY MOUTH ONCE A DAY
     Route: 048
  2. BABY ASPIRIN [Concomitant]
     Active Substance: ASPIRIN
     Dosage: 162 MG, 1X/DAY, 81MG TABLET, 2 TABLETS BY MOUTH ONCE A DAY
     Route: 048
  3. PROSCAN [Concomitant]
     Indication: PROSTATOMEGALY
     Dosage: 5 MG, 1X/DAY, 5MG TABLET BY MOUTH ONCE A DAY
     Route: 048
  4. LANTUS [Concomitant]
     Active Substance: INSULIN GLARGINE
     Indication: DIABETES MELLITUS
     Dosage: 50 IU, 1X/DAY, 50 UNITS SUBCUTANEOUSLY ONCE A DAY
     Route: 058
  5. LUNESTA [Concomitant]
     Active Substance: ESZOPICLONE
     Indication: SLEEP DISORDER
     Dosage: 2 MG, DAILY, 2MG TABLET BY MOUTH AT NIGHT
     Route: 048
  6. VIAGRA [Suspect]
     Active Substance: SILDENAFIL CITRATE
     Indication: ERECTILE DYSFUNCTION
     Dosage: 100 MG, EVERY OTHER DAY FOR 5 DAYS
     Route: 048
     Dates: start: 20150907
  7. HUMALOG [Concomitant]
     Active Substance: INSULIN LISPRO
     Indication: DIABETES MELLITUS
     Dosage: 20 IU, 1X/DAY, 20 UNITS SUBCUTANEOUSLY ONCE A DAY
     Route: 058
  8. VASOTEC [Concomitant]
     Active Substance: ENALAPRIL MALEATE
     Indication: BLOOD PRESSURE ABNORMAL
     Dosage: 25 MG, 1X/DAY, 25MG TABLET BY MOUTH ONCE A DAY
     Route: 048

REACTIONS (1)
  - Drug ineffective [Unknown]
